FAERS Safety Report 5036194-7 (Version None)
Quarter: 2006Q2

REPORT INFORMATION
  Report Type: 
  Country: None (occurrence: None)
  Receive Date: 20060601
  Receipt Date: 20060203
  Transmission Date: 20061013
  Serious: No
  Sender: FDA-Public Use
  Company Number: US200601004261

PATIENT
  Age: 40 Year
  Sex: Female

DRUGS (4)
  1. CYMBALTA [Suspect]
     Indication: FIBROMYALGIA
     Dosage: SEE IMAGE
     Dates: start: 20051201
  2. CYMBALTA [Suspect]
     Indication: FIBROMYALGIA
     Dosage: SEE IMAGE
     Dates: start: 20051201
  3. PROZAC [Suspect]
     Indication: DEPRESSION
     Dosage: 20 MG, EACH MORNING
  4. THYROID TAB [Concomitant]

REACTIONS (7)
  - ABDOMINAL PAIN [None]
  - CONSTIPATION [None]
  - DEPRESSION [None]
  - DISABILITY [None]
  - HAEMORRHOIDS [None]
  - HEADACHE [None]
  - INSOMNIA [None]
